FAERS Safety Report 14927188 (Version 1)
Quarter: 2018Q2

REPORT INFORMATION
  Report Type: Spontaneous
  Country: MX (occurrence: MX)
  Receive Date: 20180523
  Receipt Date: 20180523
  Transmission Date: 20180711
  Serious: Yes (Life-Threatening, Hospitalization, Other)
  Sender: FDA-Public Use
  Company Number: MX-STRIDES ARCOLAB LIMITED-2018SP003830

PATIENT

DRUGS (2)
  1. IBUPROFEN. [Suspect]
     Active Substance: IBUPROFEN
     Indication: HEADACHE
     Dosage: 800 MG 4 DF PER DAY
     Route: 048
     Dates: end: 20170710
  2. IBUPROFEN. [Suspect]
     Active Substance: IBUPROFEN
     Indication: INFLUENZA LIKE ILLNESS
     Dosage: 800 MG 6 DF PER DAY
     Route: 048
     Dates: start: 20170711, end: 20170713

REACTIONS (5)
  - Acute kidney injury [Recovered/Resolved]
  - Respiratory distress [Unknown]
  - Renal tubular acidosis [Recovered/Resolved]
  - Drug administration error [Unknown]
  - Intentional overdose [Unknown]

NARRATIVE: CASE EVENT DATE: 20170711
